FAERS Safety Report 12263640 (Version 1)
Quarter: 2016Q2

REPORT INFORMATION
  Report Type: Spontaneous
  Country: US (occurrence: None)
  Receive Date: 20160412
  Receipt Date: 20160412
  Transmission Date: 20160815
  Serious: No
  Sender: FDA-Public Use
  Company Number: None

PATIENT
  Age: 66 Year
  Sex: Female
  Weight: 55.34 kg

DRUGS (12)
  1. CALCIUM /MAGNESIUM [Concomitant]
  2. OMEPRAZOL [Concomitant]
     Active Substance: OMEPRAZOLE
  3. RESTASIS [Suspect]
     Active Substance: CYCLOSPORINE
     Indication: DRY EYE
     Route: 047
     Dates: start: 20160324, end: 20160410
  4. EVISTA [Concomitant]
     Active Substance: RALOXIFENE HYDROCHLORIDE
  5. SYNTHROID [Concomitant]
     Active Substance: LEVOTHYROXINE SODIUM
  6. ZEGRID [Concomitant]
  7. VSL33 [Concomitant]
  8. BABY ASPIRIN [Concomitant]
     Active Substance: ASPIRIN
  9. METROPOLOL [Concomitant]
     Active Substance: METOPROLOL
  10. MEVACOR [Concomitant]
     Active Substance: LOVASTATIN
  11. ONCOVITE [Concomitant]
  12. CYTOMMEL [Concomitant]

REACTIONS (6)
  - Condition aggravated [None]
  - Hair growth abnormal [None]
  - Fatigue [None]
  - Myalgia [None]
  - Eye irritation [None]
  - Dysgeusia [None]

NARRATIVE: CASE EVENT DATE: 20160409
